FAERS Safety Report 26080227 (Version 1)
Quarter: 2025Q4

REPORT INFORMATION
  Report Type: Spontaneous
  Country: US (occurrence: US)
  Receive Date: 20251124
  Receipt Date: 20251124
  Transmission Date: 20260117
  Serious: No
  Sender: ROCHE
  Company Number: US-ROCHE-10000441942

PATIENT
  Sex: Male

DRUGS (7)
  1. XOLAIR [Suspect]
     Active Substance: OMALIZUMAB
     Indication: Asthma
     Dosage: 300 MG 2 ML
     Route: 058
  2. Advil Cap 200 mg [Concomitant]
  3. Atorvastatin tab 80 mg [Concomitant]
  4. Azithromycin Tab 500 mg [Concomitant]
  5. Montelukast Tab 10 mg [Concomitant]
  6. Multivitamin Tab [Concomitant]
  7. Trelegy Elli aep 200-62.5 [Concomitant]
     Dosage: AEP 200-62.5

REACTIONS (1)
  - Injection site pain [Unknown]
